FAERS Safety Report 10146191 (Version 1)
Quarter: 2014Q2

REPORT INFORMATION
  Report Type: Spontaneous
  Country: CA (occurrence: CA)
  Receive Date: 20140501
  Receipt Date: 20140501
  Transmission Date: 20141212
  Serious: Yes (Other)
  Sender: FDA-Public Use
  Company Number: CA-NOVOPROD-408601

PATIENT
  Age: 55 Year
  Sex: Female

DRUGS (5)
  1. VICTOZA [Suspect]
     Indication: PRODUCT USED FOR UNKNOWN INDICATION
     Dosage: 1.8 MG, QD (1 EVERY 1 DAY)
     Route: 058
  2. ROSUVASTATIN [Concomitant]
     Dosage: UNK
     Route: 048
  3. RAMIPRIL [Concomitant]
     Dosage: UNK
     Route: 065
  4. AMLODIPINE [Concomitant]
     Dosage: UNK
     Route: 048
  5. METFORMIN [Concomitant]
     Dosage: UNK
     Route: 048

REACTIONS (3)
  - Decreased appetite [Recovered/Resolved]
  - Nausea [Recovered/Resolved]
  - Vomiting [Recovered/Resolved]
